FAERS Safety Report 26214736 (Version 1)
Quarter: 2025Q4

REPORT INFORMATION
  Report Type: Spontaneous
  Country: JP (occurrence: JP)
  Receive Date: 20251230
  Receipt Date: 20251230
  Transmission Date: 20260118
  Serious: Yes (Other)
  Sender: PFIZER
  Company Number: JP-PFIZER INC-PV202500150095

PATIENT
  Age: 69 Year
  Sex: Male
  Weight: 60.3 kg

DRUGS (15)
  1. OXALIPLATIN [Suspect]
     Active Substance: OXALIPLATIN
     Indication: Colon cancer
     Dosage: UNK
     Route: 041
     Dates: start: 20250917
  2. OXALIPLATIN [Suspect]
     Active Substance: OXALIPLATIN
     Dosage: 130 MG, 1X/DAY
     Route: 041
     Dates: start: 20251126, end: 20251126
  3. VECTIBIX [Suspect]
     Active Substance: PANITUMUMAB
     Indication: Colon cancer
     Dosage: UNK
     Route: 041
     Dates: start: 20250917
  4. VECTIBIX [Suspect]
     Active Substance: PANITUMUMAB
     Dosage: 360 MG, 1X/DAY
     Route: 041
     Dates: start: 20251126, end: 20251126
  5. LEUCOVORIN CALCIUM [Concomitant]
     Active Substance: LEUCOVORIN CALCIUM
     Indication: Colon cancer
     Dosage: UNK
     Dates: start: 20250917
  6. LEUCOVORIN CALCIUM [Concomitant]
     Active Substance: LEUCOVORIN CALCIUM
     Dosage: UNK
     Dates: start: 20251126, end: 20251126
  7. FLUOROURACIL [Concomitant]
     Active Substance: FLUOROURACIL
     Indication: Colon cancer
     Dosage: UNK
     Dates: start: 20250917
  8. FLUOROURACIL [Concomitant]
     Active Substance: FLUOROURACIL
     Dosage: UNK
     Dates: start: 20251126, end: 20251126
  9. MINOCYCLINE HYDROCHLORIDE [Concomitant]
     Active Substance: MINOCYCLINE HYDROCHLORIDE
     Dosage: 2 DF, 2X/DAY (AFTER BREAKFAST AND DINNER)
  10. DECADRON [Concomitant]
     Active Substance: DEXAMETHASONE
     Dosage: 1 DF, 1X/DAY (AFTER BREAKFAST)
  11. LOPERAMIDE HYDROCHLORIDE [Concomitant]
     Active Substance: LOPERAMIDE HYDROCHLORIDE
     Dosage: 1 DF, AS NEEDED (WHEN DIARRHOEA)
  12. HEPARINOID [Concomitant]
     Dosage: UNK
     Route: 061
  13. LOCOID [Concomitant]
     Active Substance: HYDROCORTISONE BUTYRATE
     Indication: Rash
     Dosage: UNK
     Route: 061
  14. MYSER [DIFLUPREDNATE] [Concomitant]
     Indication: Rash
     Dosage: UNK
     Route: 061
  15. RINDERON VG [Concomitant]
     Active Substance: BETAMETHASONE VALERATE\GENTAMICIN SULFATE
     Indication: Rash
     Dosage: UNK, (LOTION)
     Route: 061

REACTIONS (2)
  - Respiratory symptom [Recovered/Resolved]
  - Urticaria [Recovered/Resolved]

NARRATIVE: CASE EVENT DATE: 20251126
